FAERS Safety Report 11705239 (Version 4)
Quarter: 2016Q1

REPORT INFORMATION
  Report Type: Report from Study
  Country: FR (occurrence: FR)
  Receive Date: 20151106
  Receipt Date: 20160112
  Transmission Date: 20160525
  Serious: Yes (Hospitalization)
  Sender: FDA-Public Use
  Company Number: FR-AMGEN-FRANI2015114854

PATIENT
  Age: 72 Year
  Sex: Female
  Weight: 71 kg

DRUGS (11)
  1. ZOPHREN                            /00955301/ [Concomitant]
     Active Substance: ONDANSETRON
     Dosage: 8 MG, BID
     Dates: start: 20151008, end: 20151011
  2. ONCOVIN [Concomitant]
     Active Substance: VINCRISTINE SULFATE
     Indication: LYMPHOMA
     Dosage: UNK
     Dates: start: 2014
  3. CYCLOPHOSPHAMIDE. [Concomitant]
     Active Substance: CYCLOPHOSPHAMIDE
     Indication: LYMPHOMA
     Dosage: UNK
     Dates: start: 2014
  4. PREDNISONE. [Concomitant]
     Active Substance: PREDNISONE
     Indication: LYMPHOMA
     Dosage: UNK
     Dates: start: 2014
  5. DOLIPRANE [Concomitant]
     Active Substance: ACETAMINOPHEN
     Dosage: 1 G, 4 TIMES A DAY ON REQUEST
     Dates: start: 20151008
  6. ACUPAN [Concomitant]
     Active Substance: NEFOPAM HYDROCHLORIDE
     Dosage: 1 DF, Q4H ON REQUEST
     Dates: start: 20151008
  7. PEGFILGRASTIM [Suspect]
     Active Substance: PEGFILGRASTIM
     Indication: PROPHYLAXIS
     Dosage: 6 MG, ONE TIME DOSE
     Route: 058
     Dates: start: 20150918, end: 20151009
  8. RITUXIMAB [Concomitant]
     Active Substance: RITUXIMAB
     Indication: LYMPHOMA
     Dosage: UNK
     Dates: start: 2014
  9. PRIMPERAN [Concomitant]
     Active Substance: METOCLOPRAMIDE HYDROCHLORIDE
     Dosage: 20 MG, TID
     Dates: start: 20151008
  10. HYDROXYDAUNORUBICIN [Concomitant]
     Active Substance: DOXORUBICIN
     Indication: LYMPHOMA
     Dosage: UNK
     Dates: start: 2014
  11. EUPANTOL [Concomitant]
     Active Substance: PANTOPRAZOLE SODIUM
     Dosage: 20 MG, QD
     Dates: start: 20150916

REACTIONS (1)
  - Febrile neutropenia [Recovered/Resolved]

NARRATIVE: CASE EVENT DATE: 20151015
